FAERS Safety Report 8846434 (Version 1)
Quarter: 2012Q4

REPORT INFORMATION
  Report Type: 
  Country: CA (occurrence: CA)
  Receive Date: 20121017
  Receipt Date: 20121017
  Transmission Date: 20130627
  Serious: Yes (Other)
  Sender: FDA-Public Use
  Company Number: CA-B.I. PHARMACEUTICALS,INC./RIDGEFIELD-2012-CN-02098CN

PATIENT
  Age: 77 Year
  Sex: Female
  Weight: 59 kg

DRUGS (5)
  1. MICARDIS [Suspect]
     Dosage: 80 mg
     Route: 048
  2. ASAPHEN [Concomitant]
     Route: 048
  3. BIO-CAL D FORTE [Concomitant]
     Route: 048
  4. PAROXETINE [Concomitant]
     Route: 048
  5. TEVA-PAROXETINE [Concomitant]
     Route: 065

REACTIONS (5)
  - Blood pressure increased [Unknown]
  - Heart rate decreased [Unknown]
  - Muscular weakness [Unknown]
  - Myalgia [Unknown]
  - Sensation of heaviness [Unknown]
